FAERS Safety Report 13704921 (Version 1)
Quarter: 2017Q2

REPORT INFORMATION
  Report Type: Spontaneous
  Country: US (occurrence: US)
  Receive Date: 20170630
  Receipt Date: 20170630
  Transmission Date: 20170830
  Serious: No
  Sender: FDA-Public Use
  Company Number: US-IPSEN BIOPHARMACEUTICALS, INC.-2015-3750

PATIENT
  Age: 44 Year
  Sex: Female
  Weight: 77 kg

DRUGS (1)
  1. SOMATULINE DEPOT [Suspect]
     Active Substance: LANREOTIDE ACETATE
     Indication: CARCINOID TUMOUR
     Route: 065
     Dates: start: 201412

REACTIONS (3)
  - Heart rate increased [Unknown]
  - Headache [Unknown]
  - Condition aggravated [Unknown]

NARRATIVE: CASE EVENT DATE: 201412
